FAERS Safety Report 4356283-X (Version None)
Quarter: 2004Q2

REPORT INFORMATION
  Report Type: 
  Country: None (occurrence: None)
  Receive Date: 20040506
  Receipt Date: 20040423
  Transmission Date: 20050107
  Serious: Yes (Life-Threatening, Hospitalization, Other)
  Sender: FDA-Public Use
  Company Number: 2002057832

PATIENT
  Age: 42 Year
  Sex: Male
  Weight: 83 kg

DRUGS (3)
  1. NEURONTIN [Suspect]
     Indication: NEURALGIA
     Dosage: 900 MG (TID), ORAL
     Route: 048
     Dates: start: 20020601, end: 20020707
  2. CEFOTAXIME SODIUM [Concomitant]
  3. CEPHALEXIN MONOHYDRATE [Concomitant]

REACTIONS (13)
  - AGRANULOCYTOSIS [None]
  - BACTERIAL INFECTION [None]
  - BLOOD LACTATE DEHYDROGENASE INCREASED [None]
  - BODY TEMPERATURE INCREASED [None]
  - BONE MARROW TOXICITY [None]
  - DRUG TOXICITY [None]
  - ELECTROCARDIOGRAM ST-T SEGMENT ELEVATION [None]
  - PARVOVIRUS INFECTION [None]
  - PERICARDIAL EFFUSION [None]
  - SPLENOMEGALY [None]
  - STAPHYLOCOCCAL INFECTION [None]
  - TROPONIN INCREASED [None]
  - VIRAL MYOCARDITIS [None]
